FAERS Safety Report 4297280-2 (Version None)
Quarter: 2004Q1

REPORT INFORMATION
  Report Type: 
  Country: None (occurrence: None)
  Receive Date: 20040212
  Receipt Date: 20030204
  Transmission Date: 20041129
  Serious: Yes (Other)
  Sender: FDA-Public Use
  Company Number: A03200300224

PATIENT
  Age: 29 Year
  Sex: Female

DRUGS (4)
  1. AMBIEN [Suspect]
     Indication: INSOMNIA
     Dosage: 10 MG HS - ORAL
     Route: 048
     Dates: start: 20030129, end: 20030129
  2. PREDNISONE [Concomitant]
  3. BACLOFEN [Concomitant]
  4. FLUOXETINE HCL [Concomitant]

REACTIONS (2)
  - AMNESIA [None]
  - HALLUCINATION, VISUAL [None]
